FAERS Safety Report 22219923 (Version 2)
Quarter: 2023Q2

REPORT INFORMATION
  Report Type: Other
  Country: US (occurrence: None)
  Receive Date: 20230417
  Receipt Date: 20230426
  Transmission Date: 20230721
  Serious: Yes (Hospitalization)
  Sender: FDA-Public Use
  Company Number: US-ROCHE-3330824

PATIENT
  Age: 45 Year
  Sex: Male
  Weight: 109.41 kg

DRUGS (8)
  1. OCREVUS [Suspect]
     Active Substance: OCRELIZUMAB
     Indication: Relapsing multiple sclerosis
     Dosage: 600 MG EVERY 6 MONTHS
     Route: 042
     Dates: start: 20200715
  2. VESICARE [Concomitant]
     Active Substance: SOLIFENACIN SUCCINATE
  3. BACLOFEN [Concomitant]
     Active Substance: BACLOFEN
  4. BUPROPION [Concomitant]
     Active Substance: BUPROPION
  5. VITAMIN D3 [Concomitant]
     Active Substance: CHOLECALCIFEROL
  6. ATORVASTATIN [Concomitant]
     Active Substance: ATORVASTATIN
  7. VITAMIN C [Concomitant]
     Active Substance: ASCORBIC ACID
  8. ESCITALOPRAM [Concomitant]
     Active Substance: ESCITALOPRAM OXALATE

REACTIONS (1)
  - Urinary tract infection [Not Recovered/Not Resolved]
